FAERS Safety Report 21659975 (Version 4)
Quarter: 2023Q1

REPORT INFORMATION
  Report Type: Spontaneous
  Country: JP (occurrence: JP)
  Receive Date: 20221130
  Receipt Date: 20230227
  Transmission Date: 20230418
  Serious: Yes (Hospitalization, Other)
  Sender: FDA-Public Use
  Company Number: JP-ONO-2022JP031397

PATIENT
  Age: 55 Year
  Sex: Male
  Weight: 53.6 kg

DRUGS (21)
  1. OPDIVO [Suspect]
     Active Substance: NIVOLUMAB
     Indication: Non-small cell lung cancer recurrent
     Dosage: 240 MG
     Route: 041
     Dates: end: 20210813
  2. ANAMORELIN HYDROCHLORIDE [Suspect]
     Active Substance: ANAMORELIN HYDROCHLORIDE
     Indication: Cachexia
     Dosage: 100 MG, EVERYDAY
     Route: 048
     Dates: start: 20210522, end: 20220130
  3. RAMUCIRUMAB [Suspect]
     Active Substance: RAMUCIRUMAB
     Indication: Non-small cell lung cancer
     Dosage: 550 MG
     Dates: start: 20210831, end: 20210831
  4. DOCETAXEL [Suspect]
     Active Substance: DOCETAXEL
     Indication: Non-small cell lung cancer
     Dosage: 78 MG
     Dates: start: 20210831, end: 20210831
  5. PIPERACILLIN SODIUM\TAZOBACTAM SODIUM [Suspect]
     Active Substance: PIPERACILLIN SODIUM\TAZOBACTAM SODIUM
     Indication: Product used for unknown indication
     Dosage: 2 DF, EVERYDAY
     Route: 042
     Dates: start: 20210826, end: 20210826
  6. PIPERACILLIN SODIUM\TAZOBACTAM SODIUM [Suspect]
     Active Substance: PIPERACILLIN SODIUM\TAZOBACTAM SODIUM
     Dosage: 3 DF, EVERYDAY
     Route: 042
     Dates: start: 20210827, end: 20210828
  7. PIPERACILLIN SODIUM\TAZOBACTAM SODIUM [Suspect]
     Active Substance: PIPERACILLIN SODIUM\TAZOBACTAM SODIUM
     Dosage: 1 DF, EVERYDAY
     Route: 042
     Dates: start: 20210829, end: 20210829
  8. OXYCODONE HYDROCHLORIDE [Concomitant]
     Active Substance: OXYCODONE HYDROCHLORIDE
     Indication: Product used for unknown indication
     Dosage: 5 MG, EVERYDAY. POWDER (EXCEPT [DPO])
     Route: 048
     Dates: end: 20210702
  9. EPINASTINE HYDROCHLORIDE [Concomitant]
     Active Substance: EPINASTINE HYDROCHLORIDE
     Indication: Product used for unknown indication
     Dosage: 20 MG, EVERYDAY
     Route: 048
     Dates: end: 20210701
  10. FLOMOX [CEFCAPENE PIVOXIL HYDROCHLORIDE HYDRATE] [Concomitant]
     Indication: Product used for unknown indication
     Dosage: 300 MG, EVERYDAY
     Route: 048
     Dates: end: 20210603
  11. OXYCODONE HYDROCHLORIDE [Concomitant]
     Active Substance: OXYCODONE HYDROCHLORIDE
     Indication: Product used for unknown indication
     Dosage: 10 MG, EVERYDAY
     Route: 048
     Dates: end: 20210603
  12. OXYCODONE HYDROCHLORIDE [Concomitant]
     Active Substance: OXYCODONE HYDROCHLORIDE
     Dosage: 5 MG, EVERYDAY
     Route: 048
     Dates: start: 20210604, end: 20220126
  13. RABEPRAZOLE SODIUM [Concomitant]
     Active Substance: RABEPRAZOLE SODIUM
     Indication: Prophylaxis
     Dosage: 10 MG, EVERYDAY
     Route: 048
     Dates: end: 20220130
  14. DESLORATADINE [Concomitant]
     Active Substance: DESLORATADINE
     Indication: Product used for unknown indication
     Dosage: 5 MG, EVERYDAY
     Route: 048
     Dates: end: 20210905
  15. FERROUS SULFATE [Concomitant]
     Active Substance: FERROUS SULFATE
     Indication: Product used for unknown indication
     Dosage: 105 MG, EVERYDAY
     Route: 048
     Dates: end: 20220130
  16. CALCIUM CARBONATE\CHOLECALCIFEROL\MAGNESIUM CARBONATE [Concomitant]
     Active Substance: CALCIUM CARBONATE\CHOLECALCIFEROL\MAGNESIUM CARBONATE
     Indication: Prophylaxis
     Dosage: 2 DF, EVERYDAY
     Route: 048
     Dates: end: 20211017
  17. LOXOPROFEN SODIUM [Concomitant]
     Active Substance: LOXOPROFEN SODIUM
     Indication: Product used for unknown indication
     Dosage: 180 MG, EVERYDAY
     Route: 048
     Dates: end: 20210926
  18. ICOSAPENT ETHYL [Concomitant]
     Active Substance: ICOSAPENT ETHYL
     Indication: Product used for unknown indication
     Dosage: 1800 MG, EVERYDAY
     Dates: start: 20210716, end: 20210905
  19. MIROGABALIN BESYLATE [Concomitant]
     Active Substance: MIROGABALIN BESYLATE
     Indication: Product used for unknown indication
     Dosage: 10 MG, EVERYDAY
     Route: 048
     Dates: start: 20210730, end: 20210812
  20. MIROGABALIN BESYLATE [Concomitant]
     Active Substance: MIROGABALIN BESYLATE
     Dosage: 20 MG, EVERYDAY
     Route: 048
     Dates: start: 20210813, end: 20220130
  21. AMRUBICIN HYDROCHLORIDE [Concomitant]
     Active Substance: AMRUBICIN HYDROCHLORIDE
     Indication: Non-small cell lung cancer
     Dates: start: 20211013, end: 20220114

REACTIONS (12)
  - Spinal cord paralysis [Not Recovered/Not Resolved]
  - Urinary retention [Not Recovered/Not Resolved]
  - Haemoglobin decreased [Not Recovered/Not Resolved]
  - Tumour associated fever [Recovered/Resolved]
  - Infection [Recovered/Resolved]
  - Pneumonia aspiration [Recovering/Resolving]
  - Hyperkalaemia [Recovering/Resolving]
  - Rash [Recovering/Resolving]
  - Stomatitis [Recovering/Resolving]
  - Nausea [Recovering/Resolving]
  - Hyponatraemia [Recovering/Resolving]
  - Non-small cell lung cancer [Unknown]

NARRATIVE: CASE EVENT DATE: 20210815
